FAERS Safety Report 9375348 (Version 1)
Quarter: 2013Q2

REPORT INFORMATION
  Report Type: Spontaneous
  Country: US (occurrence: US)
  Receive Date: 20130628
  Receipt Date: 20130628
  Transmission Date: 20140414
  Serious: Yes (Other)
  Sender: FDA-Public Use
  Company Number: US-B.I. PHARMACEUTICALS,INC./RIDGEFIELD-2013-BI-18153BP

PATIENT
  Sex: Male

DRUGS (1)
  1. SPIRIVA [Suspect]
     Indication: TOTAL LUNG CAPACITY DECREASED
     Dosage: 18 MCG
     Route: 055
     Dates: start: 2012

REACTIONS (2)
  - Prostate cancer [Recovered/Resolved]
  - Bladder cancer [Recovered/Resolved]
